FAERS Safety Report 8306434-7 (Version None)
Quarter: 2012Q2

REPORT INFORMATION
  Report Type: 
  Country: None (occurrence: None)
  Receive Date: 20120423
  Receipt Date: 20120417
  Transmission Date: 20120825
  Serious: Yes (Death, Life-Threatening, Hospitalization)
  Sender: FDA-Public Use
  Company Number: US-BRISTOL-MYERS SQUIBB COMPANY-15094162

PATIENT
  Age: 73 Year
  Sex: Male
  Weight: 81 kg

DRUGS (3)
  1. TAXOL [Suspect]
     Indication: NON-SMALL CELL LUNG CANCER
     Dosage: PACLITAXEL 200MG/M2 DAYS 71 AND 92
     Dates: start: 20100405, end: 20100405
  2. ERBITUX [Suspect]
     Indication: NON-SMALL CELL LUNG CANCER
     Dosage: CETUXIMAB 250 MG/M2 DAYS 50,57,64,71,78, 85,92,99,106
     Dates: start: 20100412, end: 20100412
  3. CARBOPLATIN [Suspect]
     Indication: NON-SMALL CELL LUNG CANCER
     Dosage: CARBOPLATIN AUC=6 DAYS 71 AND 92
     Dates: start: 20100405, end: 20100405

REACTIONS (5)
  - COUGH [None]
  - FATIGUE [None]
  - EMBOLISM [None]
  - DYSPNOEA [None]
  - ABDOMINAL PAIN UPPER [None]
